FAERS Safety Report 10551251 (Version 2)
Quarter: 2015Q1

REPORT INFORMATION
  Report Type: Spontaneous
  Country: DE (occurrence: None)
  Receive Date: 20141027
  Receipt Date: 20150116
  Transmission Date: 20150720
  Serious: Yes (Death, Hospitalization)
  Sender: FDA-Public Use
  Company Number: NSR_01643_2014

PATIENT
  Age: 67 Year
  Weight: 92 kg

DRUGS (1)
  1. ALLOPURINOL. [Suspect]
     Active Substance: ALLOPURINOL
     Indication: GOUT
     Dosage: 1 WEEK UNTIL NOT CONTINUING, 300 MG, DAILY

REACTIONS (16)
  - Urinary tract infection [None]
  - Respiratory failure [None]
  - Acinetobacter test positive [None]
  - Sepsis [None]
  - Chest discomfort [None]
  - Drug reaction with eosinophilia and systemic symptoms [None]
  - Acute kidney injury [None]
  - Tubulointerstitial nephritis [None]
  - Pneumonia [None]
  - Klebsiella test positive [None]
  - Toxic epidermal necrolysis [None]
  - Diarrhoea [None]
  - Pseudomonas test positive [None]
  - Cytomegalovirus infection [None]
  - Aspergillus infection [None]
  - Multi-organ failure [None]
